FAERS Safety Report 12664514 (Version 2)
Quarter: 2016Q3

REPORT INFORMATION
  Report Type: Spontaneous
  Country: US (occurrence: US)
  Receive Date: 20160818
  Receipt Date: 20160824
  Transmission Date: 20161109
  Serious: Yes (Hospitalization)
  Sender: FDA-Public Use
  Company Number: US-PFIZER INC-2016387146

PATIENT
  Age: 31 Year
  Sex: Female

DRUGS (2)
  1. VFEND [Suspect]
     Active Substance: VORICONAZOLE
     Indication: COCCIDIOIDOMYCOSIS
     Dosage: 200 MG, 2X/DAY (1.5 TABLETS)
     Route: 048
  2. VFEND [Suspect]
     Active Substance: VORICONAZOLE
     Indication: APLASTIC ANAEMIA
     Dosage: 300 MG (1.5 TABLETS), TWICE A DAY (EVERY 12 HOURS)
     Route: 048

REACTIONS (2)
  - Pancytopenia [Unknown]
  - Product use issue [Unknown]
